FAERS Safety Report 20040295 (Version 2)
Quarter: 2021Q4

REPORT INFORMATION
  Report Type: Spontaneous
  Country: US (occurrence: US)
  Receive Date: 20211106
  Receipt Date: 20211226
  Transmission Date: 20220304
  Serious: No
  Sender: FDA-Public Use
  Company Number: US-JNJFOC-20211039566

PATIENT
  Age: 65 Year
  Sex: Male
  Weight: 97.610 kg

DRUGS (2)
  1. TREMFYA [Suspect]
     Active Substance: GUSELKUMAB
     Indication: Psoriasis
     Dosage: COMPLETED TWO DOSES
     Route: 065
     Dates: start: 20210923
  2. TREMFYA [Suspect]
     Active Substance: GUSELKUMAB
     Indication: Psoriatic arthropathy

REACTIONS (1)
  - Headache [Not Recovered/Not Resolved]

NARRATIVE: CASE EVENT DATE: 20211020
